FAERS Safety Report 8575739-7 (Version None)
Quarter: 2012Q3

REPORT INFORMATION
  Report Type: 
  Country: None (occurrence: None)
  Receive Date: 20120807
  Receipt Date: 20120803
  Transmission Date: 20120928
  Serious: Yes (Other)
  Sender: FDA-Public Use
  Company Number: PHFR2012GB004011

PATIENT
  Sex: Male

DRUGS (1)
  1. CLOZARIL [Suspect]
     Indication: SCHIZOPHRENIA
     Dosage: 200 MG, DAILY
     Route: 048
     Dates: start: 20120530

REACTIONS (7)
  - GASTROENTERITIS VIRAL [None]
  - DYSPNOEA [None]
  - NAUSEA [None]
  - VIRAL PHARYNGITIS [None]
  - DYSPHAGIA [None]
  - MALAISE [None]
  - VOMITING [None]
